FAERS Safety Report 8286795-8 (Version None)
Quarter: 2012Q2

REPORT INFORMATION
  Report Type: 
  Country: None (occurrence: None)
  Receive Date: 20120416
  Receipt Date: 20120405
  Transmission Date: 20120825
  Serious: Yes (Death)
  Sender: FDA-Public Use
  Company Number: IL-NOVOPROD-349019

PATIENT
  Age: 64 Year
  Sex: Male

DRUGS (1)
  1. NOVOSEVEN [Suspect]
     Indication: HAEMORRHAGE
     Dosage: 11 MG, QD (3 X 2 MG + 1 X 5 MG)
     Route: 065

REACTIONS (1)
  - MULTI-ORGAN FAILURE [None]
